FAERS Safety Report 4821720-0 (Version None)
Quarter: 2005Q4

REPORT INFORMATION
  Report Type: 
  Country: None (occurrence: None)
  Receive Date: 20051104
  Receipt Date: 20051104
  Transmission Date: 20060501
  Serious: Yes (Other)
  Sender: FDA-Public Use
  Company Number: None

PATIENT
  Sex: Female

DRUGS (4)
  1. ENDOSOL EXTRA [Suspect]
     Indication: CATARACT
     Dosage: INTRAOCULAR
     Route: 031
     Dates: start: 20051006
  2. ENDOSOL EXTRA [Suspect]
     Dosage: TOPICAL-OPHTH
     Route: 047
     Dates: start: 20051006
  3. XYLOCAINE 1% MPF [Concomitant]
  4. PROVISC [Concomitant]

REACTIONS (1)
  - EYE INFLAMMATION [None]
